FAERS Safety Report 9032133 (Version 1)
Quarter: 2013Q1

REPORT INFORMATION
  Report Type: Report from Study
  Country: GB (occurrence: GB)
  Receive Date: 20130122
  Receipt Date: 20130122
  Transmission Date: 20140127
  Serious: Yes (Hospitalization)
  Sender: FDA-Public Use
  Company Number: GB-PFIZER INC-2012266455

PATIENT
  Age: 46 Year
  Sex: Male
  Weight: 73.8 kg

DRUGS (17)
  1. DOXORUBICIN [Suspect]
     Indication: NON-HODGKIN^S LYMPHOMA
     Dosage: 100 MG, EVERY 3 WEEKS
     Route: 042
     Dates: start: 20110420
  2. DOXORUBICIN [Suspect]
     Indication: B-CELL LYMPHOMA
  3. CYCLOPHOSPHAMIDE [Suspect]
     Indication: NON-HODGKIN^S LYMPHOMA
     Dosage: 1500 MG, EVERY 3 WEEKS
     Route: 042
     Dates: start: 20110420
  4. CYCLOPHOSPHAMIDE [Suspect]
     Indication: B-CELL LYMPHOMA
  5. VINCRISTINE [Suspect]
     Indication: NON-HODGKIN^S LYMPHOMA
     Dosage: 2 MG, EVERY 3 WEEKS
     Route: 042
     Dates: start: 20110420
  6. VINCRISTINE [Suspect]
     Indication: B-CELL LYMPHOMA
  7. PREDNISOLONE [Suspect]
     Indication: NON-HODGKIN^S LYMPHOMA
     Dosage: 100 MG, EVERY 3 WEEKS
     Route: 048
     Dates: start: 20110420
  8. PREDNISOLONE [Suspect]
     Indication: B-CELL LYMPHOMA
     Dosage: 30 MG, UNK
     Route: 048
     Dates: start: 20110628, end: 20110630
  9. OBINUTUZUMAB [Suspect]
     Indication: NON-HODGKIN^S LYMPHOMA
     Dosage: 1000 MG, EVERY 3 WEEKS
     Route: 042
     Dates: start: 20110420
  10. OBINUTUZUMAB [Suspect]
     Indication: B-CELL LYMPHOMA
  11. PARACETAMOL [Concomitant]
     Dosage: UNK
  12. SALBUTAMOL [Concomitant]
  13. METOCLOPRAMIDE [Concomitant]
     Dosage: 10 MG, UNK
     Dates: start: 20110420
  14. ANAVAR [Concomitant]
     Dosage: 400 MG
     Dates: start: 201105
  15. CO-CODAMOL [Concomitant]
     Dosage: TDD: 30/500
     Dates: start: 20110620
  16. LANSOPRAZOLE [Concomitant]
     Dosage: 30 MG, UNK
     Dates: start: 20110418, end: 201110
  17. BENZYDAMINE [Concomitant]
     Dosage: 10 ML, AS NEEDED
     Dates: start: 20110427, end: 20111031

REACTIONS (3)
  - Pneumocystis jirovecii pneumonia [Recovered/Resolved]
  - Neutropenic infection [Recovered/Resolved]
  - Pyrexia [Recovered/Resolved]
